FAERS Safety Report 23571489 (Version 1)
Quarter: 2024Q1

REPORT INFORMATION
  Report Type: Spontaneous
  Country: CN (occurrence: CN)
  Receive Date: 20240227
  Receipt Date: 20240227
  Transmission Date: 20240410
  Serious: Yes (Life-Threatening, Other)
  Sender: FDA-Public Use
  Company Number: CN-MLMSERVICE-20240209-4823320-1

PATIENT
  Age: 56 Year
  Sex: Female

DRUGS (10)
  1. OXALIPLATIN [Suspect]
     Active Substance: OXALIPLATIN
     Indication: Metastases to rectum
     Dates: start: 20210318, end: 20210615
  2. PACLITAXEL [Suspect]
     Active Substance: PACLITAXEL
     Indication: Metastases to spine
     Dosage: 20 MG/ M2 ON DAYS 1 AND 8, Q4WKS, PTX WAS DILUTED IN 1000 ML SALINE
     Route: 033
     Dates: start: 20210329, end: 20210615
  3. CAMRELIZUMAB [Suspect]
     Active Substance: CAMRELIZUMAB
     Indication: Metastases to spine
     Dates: start: 20210315, end: 20210615
  4. APATINIB [Suspect]
     Active Substance: APATINIB
     Indication: Metastases to bladder
     Route: 048
     Dates: start: 20210321, end: 20210615
  5. GIMERACIL\OTERACIL\TEGAFUR [Suspect]
     Active Substance: GIMERACIL\OTERACIL POTASSIUM\TEGAFUR
     Indication: Metastases to bladder
     Dosage: PO, 40 MG, FOR 14 DAYS, Q3WKS;
     Route: 048
     Dates: start: 20210329, end: 20210615
  6. SALINE [Concomitant]
     Active Substance: SODIUM CHLORIDE
     Indication: Gastric cancer stage IV
     Dosage: 20 MG/ M2 ON DAYS 1 AND 8, Q4WKS, PTX WAS DILUTED IN 1000 ML
     Route: 033
     Dates: start: 20210329, end: 20210615
  7. OXALIPLATIN [Suspect]
     Active Substance: OXALIPLATIN
     Indication: Metastases to bone
     Dates: start: 20210318, end: 20210615
  8. SALINE [Concomitant]
     Active Substance: SODIUM CHLORIDE
     Indication: Metastases to bone
     Dosage: 20 MG/ M2 ON DAYS 1 AND 8, Q4WKS, PTX WAS DILUTED IN 1000 ML SALINE
     Route: 033
     Dates: start: 20210329, end: 20210615
  9. CAMRELIZUMAB [Suspect]
     Active Substance: CAMRELIZUMAB
     Indication: Gastric cancer stage IV
     Dates: start: 20210315, end: 20210615
  10. APATINIB [Suspect]
     Active Substance: APATINIB
     Indication: Gastric cancer stage IV
     Route: 048
     Dates: start: 20210321, end: 20210615

REACTIONS (4)
  - Bacterial infection [Unknown]
  - Gastrointestinal haemorrhage [Unknown]
  - Fungal infection [Unknown]
  - Myelosuppression [Unknown]

NARRATIVE: CASE EVENT DATE: 20210601
